FAERS Safety Report 12712357 (Version 1)
Quarter: 2016Q3

REPORT INFORMATION
  Report Type: Not Available
  Country: JP (occurrence: JP)
  Receive Date: 20160902
  Receipt Date: 20160902
  Transmission Date: 20161109
  Serious: Yes (Hospitalization)
  Sender: FDA-Public Use
  Company Number: JP-ANIPHARMA-2016-JP-000008

PATIENT
  Sex: Female

DRUGS (5)
  1. LANSOPRAZOLE (NON-SPECIFIC) [Suspect]
     Active Substance: LANSOPRAZOLE
     Dosage: UNKNOWN
     Route: 065
  2. MELOXICAM. [Suspect]
     Active Substance: MELOXICAM
     Dosage: UNKNOWN
     Route: 065
  3. ALFACALCIDOL [Suspect]
     Active Substance: ALFACALCIDOL
     Dosage: UNKNOWN
     Route: 065
  4. EDOXABAN [Suspect]
     Active Substance: EDOXABAN TOSYLATE
     Dosage: UNKNOWN
     Route: 065
  5. SITAGLIPTIN [Suspect]
     Active Substance: SITAGLIPTIN
     Dosage: UNKNOWN
     Route: 065

REACTIONS (4)
  - Weight decreased [Unknown]
  - Dehydration [Unknown]
  - Colitis microscopic [Recovered/Resolved]
  - Anaemia [Unknown]
